FAERS Safety Report 25564016 (Version 1)
Quarter: 2025Q3

REPORT INFORMATION
  Report Type: Spontaneous
  Country: EU (occurrence: EU)
  Receive Date: 20250716
  Receipt Date: 20250716
  Transmission Date: 20251020
  Serious: Yes (Hospitalization)
  Sender: ALEXION PHARMACEUTICALS
  Company Number: EU-ASTRAZENECA-202507GLO010861FR

PATIENT
  Age: 36 Year
  Sex: Male
  Weight: 69 kg

DRUGS (5)
  1. OMEPRAZOLE [Suspect]
     Active Substance: OMEPRAZOLE
     Indication: Gastrooesophageal reflux disease
  2. SIMPONI [Suspect]
     Active Substance: GOLIMUMAB
     Dosage: 100 MILLIGRAM, Q3W
     Dates: start: 202111
  3. SIMPONI [Suspect]
     Active Substance: GOLIMUMAB
  4. PENTASA [Suspect]
     Active Substance: MESALAMINE
     Indication: Myocarditis
     Route: 065
  5. AZATHIOPRINE [Suspect]
     Active Substance: AZATHIOPRINE
     Indication: Diarrhoea
     Route: 065
     Dates: start: 20220228, end: 20220313

REACTIONS (7)
  - Urticaria [Not Recovered/Not Resolved]
  - Eosinophil count [Not Recovered/Not Resolved]
  - Hyperleukocytosis [Unknown]
  - Thrombocytosis [Unknown]
  - Asthenia [Unknown]
  - Proteinuria [Unknown]
  - Glycosuria [Unknown]

NARRATIVE: CASE EVENT DATE: 20250501
